FAERS Safety Report 14981392 (Version 1)
Quarter: 2018Q2

REPORT INFORMATION
  Report Type: Other
  Country: KR (occurrence: KR)
  Receive Date: 20180606
  Receipt Date: 20180606
  Transmission Date: 20180711
  Serious: Yes (Other)
  Sender: FDA-Public Use
  Company Number: KR-ACIC FINE CHEMICALS INC-2049099

PATIENT
  Age: 59 Year
  Sex: Male

DRUGS (9)
  1. IMMONOGLOBULIN [Concomitant]
  2. QUETIAPINE. [Concomitant]
     Active Substance: QUETIAPINE
  3. METHYLPREDNISOLONE. [Concomitant]
     Active Substance: METHYLPREDNISOLONE
  4. OLANZAPINE. [Concomitant]
     Active Substance: OLANZAPINE
  5. LEVETIRACETAM. [Suspect]
     Active Substance: LEVETIRACETAM
     Route: 048
  6. RITUXIMAB. [Concomitant]
     Active Substance: RITUXIMAB
  7. TOCILZUMAB [Concomitant]
  8. OXCARBAZEPINE. [Concomitant]
     Active Substance: OXCARBAZEPINE
  9. VALPROIC ACID. [Concomitant]
     Active Substance: VALPROIC ACID

REACTIONS (4)
  - Irritability [Recovered/Resolved]
  - Aggression [Recovered/Resolved]
  - Agitation [Recovered/Resolved]
  - Anger [Recovered/Resolved]
